FAERS Safety Report 5247696-2 (Version None)
Quarter: 2007Q1

REPORT INFORMATION
  Report Type: 
  Country: None (occurrence: None)
  Receive Date: 20070222
  Receipt Date: 20070205
  Transmission Date: 20070707
  Serious: Yes (Life-Threatening, Hospitalization)
  Sender: FDA-Public Use
  Company Number: 2006-03162

PATIENT
  Age: 69 Year
  Sex: Male
  Weight: 96 kg

DRUGS (11)
  1. VELCADE [Suspect]
     Indication: MULTIPLE MYELOMA
     Dosage: 2.60 MG, INTRAVENOUS
     Route: 042
     Dates: start: 20061127, end: 20061127
  2. CIPROFLOXACIN [Concomitant]
  3. ACETAMINOPHEN [Concomitant]
  4. MORPHINE [Concomitant]
  5. GRANISETRON (GRANISETRON) INFUSION [Concomitant]
  6. DIPYRONE TAB [Concomitant]
  7. OMEPRAZOLE [Concomitant]
  8. VERAPAMIL [Concomitant]
  9. HYDROCHLOROTHIAZIDE [Concomitant]
  10. TRAMADOL HCL [Concomitant]
  11. GLYCEROL (GLYCEROL) SPRAY (EXCEPT INHALATION) [Concomitant]

REACTIONS (11)
  - ABDOMINAL PAIN UPPER [None]
  - ACUTE HEPATIC FAILURE [None]
  - BLOOD GLUCOSE INCREASED [None]
  - BREATH SOUNDS ABNORMAL [None]
  - CHOLELITHIASIS [None]
  - COLD SWEAT [None]
  - CONFUSIONAL STATE [None]
  - DYSPNOEA [None]
  - GENERAL PHYSICAL HEALTH DETERIORATION [None]
  - HEPATIC STEATOSIS [None]
  - PYREXIA [None]
